FAERS Safety Report 4909884-1 (Version None)
Quarter: 2006Q1

REPORT INFORMATION
  Report Type: 
  Country: None (occurrence: None)
  Receive Date: 20060209
  Receipt Date: 20060127
  Transmission Date: 20060701
  Serious: Yes (Death)
  Sender: FDA-Public Use
  Company Number: L05-USA-03935-21

PATIENT
  Age: 52 Year
  Sex: Male

DRUGS (3)
  1. DILTIAZEM HCL [Suspect]
  2. ACETAMINOPHEN [Suspect]
  3. ETHANOL [Suspect]

REACTIONS (8)
  - BLOOD GLUCOSE INCREASED [None]
  - BLOOD LACTATE DEHYDROGENASE DECREASED [None]
  - BLOOD PH DECREASED [None]
  - CARDIO-RESPIRATORY ARREST [None]
  - COMPLETED SUICIDE [None]
  - DRUG LEVEL INCREASED [None]
  - GRAND MAL CONVULSION [None]
  - HYPOTENSION [None]
